FAERS Safety Report 6023307-3 (Version None)
Quarter: 2008Q4

REPORT INFORMATION
  Report Type: 
  Country: None (occurrence: None)
  Receive Date: 20081230
  Receipt Date: 20081223
  Transmission Date: 20090506
  Serious: Yes (Other)
  Sender: FDA-Public Use
  Company Number: US-JNJFOC-20081206348

PATIENT
  Age: 16 Year
  Sex: Male

DRUGS (5)
  1. REMICADE [Suspect]
     Indication: COLITIS ULCERATIVE
     Dosage: 6-7 INFUSIONS
     Route: 042
  2. ANTIBIOTIC [Concomitant]
     Indication: COLITIS ULCERATIVE
  3. ACETAMINOPHEN [Concomitant]
     Indication: PREMEDICATION
  4. BENADRYL [Concomitant]
     Indication: PREMEDICATION
  5. XIFAXAN [Concomitant]
     Indication: COLITIS ULCERATIVE

REACTIONS (5)
  - BLINDNESS [None]
  - FAECAL INCONTINENCE [None]
  - HYPERHIDROSIS [None]
  - INFUSION RELATED REACTION [None]
  - MYDRIASIS [None]
